FAERS Safety Report 10150488 (Version 8)
Quarter: 2015Q1

REPORT INFORMATION
  Report Type: Report from Study
  Country: DE (occurrence: DE)
  Receive Date: 20140502
  Receipt Date: 20150204
  Transmission Date: 20150720
  Serious: Yes (Hospitalization, Other)
  Sender: FDA-Public Use
  Company Number: DE-BAYER-2014-061715

PATIENT
  Age: 73 Year
  Sex: Male

DRUGS (4)
  1. DIOVAN [Concomitant]
     Active Substance: VALSARTAN
     Dosage: UNK
     Dates: start: 2010
  2. STIVARGA [Suspect]
     Active Substance: REGORAFENIB
     Indication: RECTAL CANCER
     Dosage: 4 TABLETS AT 40 MG/DAY
     Route: 048
     Dates: start: 20140318, end: 20140404
  3. DIOVAN [Concomitant]
     Active Substance: VALSARTAN
     Dosage: 80MG DAILY
     Dates: start: 2008
  4. SEVREDOL [Concomitant]
     Active Substance: MORPHINE
     Dosage: 20MG DAILY
     Dates: start: 2008

REACTIONS (2)
  - Hypertension [Recovered/Resolved]
  - Cholecystitis [Recovered/Resolved]

NARRATIVE: CASE EVENT DATE: 20140404
